FAERS Safety Report 11942107 (Version 3)
Quarter: 2016Q4

REPORT INFORMATION
  Report Type: Spontaneous
  Country: US (occurrence: US)
  Receive Date: 20160124
  Receipt Date: 20161004
  Transmission Date: 20170206
  Serious: No
  Sender: FDA-Public Use
  Company Number: US-CELGENEUS-USA-2016014462

PATIENT
  Age: 56 Year
  Sex: Female

DRUGS (1)
  1. OTEZLA [Suspect]
     Active Substance: APREMILAST
     Indication: PSORIATIC ARTHROPATHY
     Dosage: 60 MILLIGRAM
     Route: 048
     Dates: start: 201511

REACTIONS (3)
  - Headache [Recovered/Resolved]
  - Intervertebral disc degeneration [Unknown]
  - Diarrhoea [Recovered/Resolved]

NARRATIVE: CASE EVENT DATE: 201511
